FAERS Safety Report 12069386 (Version 2)
Quarter: 2016Q1

REPORT INFORMATION
  Report Type: Spontaneous
  Country: JP (occurrence: JP)
  Receive Date: 20160211
  Receipt Date: 20160222
  Transmission Date: 20160526
  Serious: Yes (Other)
  Sender: FDA-Public Use
  Company Number: JP-TEVA-634481ACC

PATIENT
  Age: 64 Year
  Sex: Female

DRUGS (2)
  1. BENDAMUSTINE HYDROCHLORIDE [Suspect]
     Active Substance: BENDAMUSTINE HYDROCHLORIDE
     Indication: B-CELL LYMPHOMA
     Dosage: (X2/28DAYS)
     Route: 042
     Dates: start: 20160114, end: 20160115
  2. RITUXIMAB [Concomitant]
     Active Substance: RITUXIMAB
     Indication: B-CELL LYMPHOMA
     Dosage: (2/28DAYS)
     Route: 041
     Dates: start: 20160113

REACTIONS (2)
  - Prescribed underdose [Unknown]
  - Pleural effusion [Recovered/Resolved]

NARRATIVE: CASE EVENT DATE: 20160114
